FAERS Safety Report 5167155-5 (Version None)
Quarter: 2006Q4

REPORT INFORMATION
  Report Type: 
  Country: None (occurrence: None)
  Receive Date: 20061130
  Receipt Date: 20061120
  Transmission Date: 20070319
  Serious: Yes (Other)
  Sender: FDA-Public Use
  Company Number: 2006113289

PATIENT
  Age: 43 Year
  Sex: Female
  Weight: 81.6475 kg

DRUGS (6)
  1. ZOLOFT [Suspect]
     Indication: ANXIETY
     Dosage: 75 MG (75 MG, 1 IN 1 D)
     Dates: start: 20060301
  2. SERTRALINE [Suspect]
     Indication: ANXIETY
     Dosage: 75 MG (75 MG,1 IN 1 D)
     Dates: end: 20060101
  3. VOLTAREN [Concomitant]
  4. HYDROCODONE BITARTRATE [Concomitant]
  5. DIAZEPAM [Concomitant]
  6. VALTREX [Concomitant]

REACTIONS (7)
  - DYSPEPSIA [None]
  - HEADACHE [None]
  - INTERVERTEBRAL DISC PROTRUSION [None]
  - JOINT SPRAIN [None]
  - NERVE COMPRESSION [None]
  - NERVOUSNESS [None]
  - PHARMACEUTICAL PRODUCT COMPLAINT [None]
